FAERS Safety Report 22936083 (Version 2)
Quarter: 2023Q4

REPORT INFORMATION
  Report Type: Other
  Country: JP (occurrence: JP)
  Receive Date: 20230912
  Receipt Date: 20231111
  Transmission Date: 20240110
  Serious: Yes (Hospitalization, Other)
  Sender: FDA-Public Use
  Company Number: None

PATIENT
  Age: 57 Year
  Sex: Female

DRUGS (11)
  1. LOXOPROFEN [Suspect]
     Active Substance: LOXOPROFEN
     Dosage: 3 TIMES DAILY
  2. FLUOROURACIL\IRINOTECAN\LEUCOVORIN\OXALIPLATIN [Concomitant]
     Active Substance: FLUOROURACIL\IRINOTECAN\LEUCOVORIN\OXALIPLATIN
     Dosage: NA
  3. OXALIPLATIN [Concomitant]
     Active Substance: OXALIPLATIN
     Dosage: NA
  4. LEUCOVORIN [Concomitant]
     Active Substance: LEUCOVORIN\LEUCOVORIN CALCIUM
     Dosage: NA
  5. IRINOTECAN [Concomitant]
     Active Substance: IRINOTECAN
     Dosage: NA
  6. Fluorouracil [5-FU] [Concomitant]
     Dosage: NA
  7. GEMCITABINE [Suspect]
     Active Substance: GEMCITABINE
     Dosage: 4 WEEK COURSE
  8. ESOMEPRAZOLE [Suspect]
     Active Substance: ESOMEPRAZOLE
  9. GEMCITABINE [Suspect]
     Active Substance: GEMCITABINE
     Dosage: 1000 MG/M SUP(2)
  10. PACLITAXEL [Suspect]
     Active Substance: PACLITAXEL
     Dosage: 125 MG/M SUP(2)
  11. PACLITAXEL [Suspect]
     Active Substance: PACLITAXEL

REACTIONS (1)
  - Interstitial lung disease [Recovered/Resolved]
